FAERS Safety Report 11891345 (Version 1)
Quarter: 2016Q1

REPORT INFORMATION
  Report Type: Spontaneous
  Country: US (occurrence: US)
  Receive Date: 20160106
  Receipt Date: 20160106
  Transmission Date: 20160526
  Serious: No
  Sender: FDA-Public Use
  Company Number: US-BAYER-2016-002435

PATIENT
  Age: 89 Year
  Sex: Female
  Weight: 59.86 kg

DRUGS (3)
  1. MIRALAX [Suspect]
     Active Substance: POLYETHYLENE GLYCOL 3350
     Indication: COLONOSCOPY
     Dosage: 1 UNK, UNK
     Route: 048
     Dates: start: 2015, end: 20160105
  2. MIRALAX [Suspect]
     Active Substance: POLYETHYLENE GLYCOL 3350
     Indication: CONSTIPATION
     Dosage: UNK UNK
     Route: 048
     Dates: start: 2013
  3. JANUVIA [Concomitant]
     Active Substance: SITAGLIPTIN PHOSPHATE
     Indication: DIABETES MELLITUS

REACTIONS (3)
  - Intentional product misuse [None]
  - Product use issue [None]
  - Intentional product use issue [None]

NARRATIVE: CASE EVENT DATE: 2013
